FAERS Safety Report 5382824-X (Version None)
Quarter: 2007Q2

REPORT INFORMATION
  Report Type: 
  Country: None (occurrence: None)
  Receive Date: 20070629
  Receipt Date: 20070412
  Transmission Date: 20071010
  Serious: Yes (Hospitalization)
  Sender: FDA-Public Use
  Company Number: US200704003001

PATIENT
  Age: 75 Year
  Sex: Female

DRUGS (1)
  1. HUMALOG MIX 75/25 [Suspect]
     Indication: DIABETES MELLITUS
     Dosage: 14 U
     Dates: start: 20020101

REACTIONS (5)
  - CARDIAC FAILURE CONGESTIVE [None]
  - INCORRECT DOSE ADMINISTERED [None]
  - PULMONARY OEDEMA [None]
  - ROAD TRAFFIC ACCIDENT [None]
  - WRIST FRACTURE [None]
